FAERS Safety Report 7399927-0 (Version None)
Quarter: 2011Q2

REPORT INFORMATION
  Report Type: 
  Country: None (occurrence: None)
  Receive Date: 20110407
  Receipt Date: 20110324
  Transmission Date: 20111010
  Serious: Yes (Other)
  Sender: FDA-Public Use
  Company Number: US-JNJFOC-20110311121

PATIENT
  Sex: Male

DRUGS (1)
  1. CONCERTA [Suspect]
     Indication: ATTENTION DEFICIT/HYPERACTIVITY DISORDER
     Route: 048

REACTIONS (9)
  - BLOOD PRESSURE INCREASED [None]
  - GASTRIC ULCER [None]
  - EPISTAXIS [None]
  - ABDOMINAL PAIN UPPER [None]
  - DIZZINESS [None]
  - PROTEIN URINE PRESENT [None]
  - WEIGHT DECREASED [None]
  - HEADACHE [None]
  - INSOMNIA [None]
